FAERS Safety Report 18550536 (Version 2)
Quarter: 2020Q4

REPORT INFORMATION
  Report Type: Spontaneous
  Country: AU (occurrence: AU)
  Receive Date: 20201126
  Receipt Date: 20201130
  Transmission Date: 20210114
  Serious: Yes (Hospitalization, Other)
  Sender: FDA-Public Use
  Company Number: AU-JNJFOC-20201134267

PATIENT
  Sex: Male

DRUGS (2)
  1. DUROGESIC [Suspect]
     Active Substance: FENTANYL
     Indication: PAIN
     Route: 065
  2. COSENTYX [Suspect]
     Active Substance: SECUKINUMAB
     Indication: ANKYLOSING SPONDYLITIS
     Route: 065

REACTIONS (13)
  - Nausea [Unknown]
  - Pain [Recovered/Resolved]
  - Posture abnormal [Unknown]
  - Wrong technique in product usage process [Unknown]
  - Drug ineffective [Unknown]
  - Drug dependence [Unknown]
  - Fear [Unknown]
  - Fatigue [Unknown]
  - Anxiety [Unknown]
  - Diarrhoea [Unknown]
  - Hypokinesia [Unknown]
  - Joint swelling [Unknown]
  - Constipation [Unknown]
